FAERS Safety Report 4744256-4 (Version None)
Quarter: 2005Q3

REPORT INFORMATION
  Report Type: 
  Country: None (occurrence: None)
  Receive Date: 20050812
  Receipt Date: 20050803
  Transmission Date: 20060218
  Serious: Yes (Other)
  Sender: FDA-Public Use
  Company Number: JP-MERCK-0508USA01550

PATIENT
  Age: 36 Year
  Sex: Female

DRUGS (3)
  1. PEPCID [Suspect]
     Indication: ULCER
     Route: 042
     Dates: start: 20050702, end: 20050707
  2. ALUMINUM HYDROXIDE AND MAGNESIUM TRISILICATE [Concomitant]
     Route: 048
     Dates: start: 20050702
  3. GASTROM [Concomitant]
     Route: 048
     Dates: start: 20050702

REACTIONS (1)
  - PANCREATITIS ACUTE [None]
